FAERS Safety Report 13689318 (Version 2)
Quarter: 2017Q3

REPORT INFORMATION
  Report Type: Spontaneous
  Country: JP (occurrence: JP)
  Receive Date: 20170626
  Receipt Date: 20170710
  Transmission Date: 20171127
  Serious: Yes (Hospitalization, Other)
  Sender: FDA-Public Use
  Company Number: JP-GLAXOSMITHKLINE-JP2017JPN091708

PATIENT
  Age: 57 Year
  Sex: Male
  Weight: 61 kg

DRUGS (7)
  1. ZYLORIC [Concomitant]
     Active Substance: ALLOPURINOL
     Indication: HYPERURICAEMIA
     Dosage: 100 MG, QD
     Dates: start: 20120308
  2. LAMICTAL [Suspect]
     Active Substance: LAMOTRIGINE
     Dosage: 25 MG, QD
     Route: 048
     Dates: start: 20170502, end: 20170525
  3. LAMICTAL [Suspect]
     Active Substance: LAMOTRIGINE
     Indication: EPILEPSY
     Dosage: 25 MG, QOD
     Route: 048
     Dates: start: 20170417, end: 20170501
  4. ATORVASTATIN [Concomitant]
     Active Substance: ATORVASTATIN
     Dosage: UNK
  5. MYSTAN [Concomitant]
     Active Substance: CLOBAZAM
     Indication: EPILEPSY
     Dosage: 5 MG, BID
     Dates: start: 20120308, end: 20170517
  6. E KEPPRA [Concomitant]
     Active Substance: LEVETIRACETAM
     Indication: EPILEPSY
     Dosage: 1000 MG, BID
     Dates: start: 20160919
  7. DEPAKENE [Concomitant]
     Active Substance: VALPROIC ACID
     Indication: EPILEPSY
     Dosage: 100 MG, BID
     Dates: start: 20120308

REACTIONS (14)
  - Generalised erythema [Recovering/Resolving]
  - Lip swelling [Recovering/Resolving]
  - Ocular hyperaemia [Unknown]
  - Erythema of eyelid [Unknown]
  - Oral mucosa erosion [Unknown]
  - Stomatitis [Recovering/Resolving]
  - Hypophagia [Recovering/Resolving]
  - Rash [Recovering/Resolving]
  - Pyrexia [Unknown]
  - Pharyngeal ulceration [Recovering/Resolving]
  - Stevens-Johnson syndrome [Recovering/Resolving]
  - Pneumonia aspiration [Recovering/Resolving]
  - Epiglottis ulcer [Recovering/Resolving]
  - Lip erosion [Unknown]

NARRATIVE: CASE EVENT DATE: 20170523
